FAERS Safety Report 4319525-2 (Version None)
Quarter: 2004Q1

REPORT INFORMATION
  Report Type: 
  Country: None (occurrence: None)
  Receive Date: 20040316
  Receipt Date: 20040302
  Transmission Date: 20041129
  Serious: Yes (Death, Hospitalization)
  Sender: FDA-Public Use
  Company Number: 03P-163-0225455-01

PATIENT
  Age: 39 Year
  Sex: Male

DRUGS (8)
  1. NORVIR [Suspect]
     Indication: HIV INFECTION
     Dosage: 200M MG, 2 IN 1 D, PER ORAL/DISC. PRIOR TO 04 EP 2003
     Route: 048
     Dates: start: 20030620
  2. TIPRANAVIR [Concomitant]
  3. ZIDOVUDINE W/LAMIVUDINE [Concomitant]
  4. VIREAD [Concomitant]
  5. MORPHINE SULFATE [Concomitant]
  6. LOMOTIL [Concomitant]
  7. METOCLOPRAMIDE [Concomitant]
  8. TENOFOVIR [Concomitant]

REACTIONS (2)
  - METABOLIC ACIDOSIS [None]
  - RENAL FAILURE ACUTE [None]
